FAERS Safety Report 8915576 (Version 3)
Quarter: 2013Q4

REPORT INFORMATION
  Report Type: Spontaneous
  Country: US (occurrence: US)
  Receive Date: 20121119
  Receipt Date: 20131226
  Transmission Date: 20140711
  Serious: No
  Sender: FDA-Public Use
  Company Number: US-B.I. PHARMACEUTICALS,INC./RIDGEFIELD-2012-BI-00695BP

PATIENT
  Sex: Female

DRUGS (3)
  1. SPIRIVA [Suspect]
     Indication: CHRONIC OBSTRUCTIVE PULMONARY DISEASE
     Dosage: 18 MCG
     Route: 055
     Dates: start: 2009, end: 2010
  2. SPIRIVA [Suspect]
     Route: 055
     Dates: start: 2010, end: 201211
  3. SPIRIVA [Suspect]
     Route: 055
     Dates: start: 2008

REACTIONS (3)
  - Intraocular pressure increased [Not Recovered/Not Resolved]
  - Eye haemorrhage [Recovered/Resolved]
  - Open angle glaucoma [Recovered/Resolved]
